FAERS Safety Report 7461187-X (Version None)
Quarter: 2011Q2

REPORT INFORMATION
  Report Type: 
  Country: None (occurrence: None)
  Receive Date: 20110505
  Receipt Date: 20110426
  Transmission Date: 20111010
  Serious: Yes (Hospitalization)
  Sender: FDA-Public Use
  Company Number: US-ASTRAZENECA-2011SE23868

PATIENT
  Age: 71 Year
  Sex: Male
  Weight: 75.7 kg

DRUGS (23)
  1. TOPROL-XL [Suspect]
     Indication: HYPERTENSION
     Route: 048
  2. ARICEPT [Interacting]
     Route: 048
     Dates: start: 20100512, end: 20100601
  3. POTASSIUM CHLORIDE [Concomitant]
     Indication: MINERAL SUPPLEMENTATION
     Route: 048
     Dates: start: 20050101
  4. FUROSEMIDE [Concomitant]
  5. NAMENDA [Interacting]
     Route: 048
     Dates: end: 20110309
  6. ARICEPT [Interacting]
     Route: 048
     Dates: start: 20100601, end: 20100901
  7. NORVASC [Interacting]
     Indication: HYPERTENSION
     Route: 048
  8. VITAMIN D [Concomitant]
     Indication: VITAMIN D DEFICIENCY
     Route: 048
  9. NAMENDA [Interacting]
     Route: 048
     Dates: start: 20110310
  10. AMBIEN [Interacting]
     Indication: INSOMNIA
     Route: 065
  11. DIAMOX [Interacting]
     Indication: HYPERTENSION
     Route: 048
  12. QUINAPRIL [Concomitant]
     Indication: HYPERTENSION
     Route: 048
     Dates: start: 20030101
  13. ZETIA [Concomitant]
     Indication: CARDIAC DISORDER
     Route: 048
     Dates: start: 20060101
  14. ARICEPT [Interacting]
     Route: 048
     Dates: start: 20100512, end: 20100601
  15. AVODART [Concomitant]
     Indication: PROSTATIC DISORDER
     Route: 048
     Dates: start: 20070101
  16. NAMENDA [Interacting]
     Indication: DEMENTIA
     Route: 048
     Dates: start: 20100918
  17. ARICEPT [Interacting]
     Indication: AMNESIA
     Route: 048
     Dates: start: 20100414
  18. METOPROLOL SUCCINATE [Concomitant]
     Indication: HYPERTENSION
     Route: 048
     Dates: start: 20050101
  19. ALPRAZOLAM [Concomitant]
     Indication: NERVOUS SYSTEM DISORDER
     Route: 048
     Dates: start: 19980101
  20. ARICEPT [Interacting]
     Indication: DEMENTIA
     Route: 048
     Dates: start: 20100414
  21. ARICEPT [Interacting]
     Route: 048
     Dates: start: 20100601, end: 20100901
  22. DILTIAZEM [Concomitant]
     Indication: HYPERTENSION
     Route: 048
     Dates: start: 20050101
  23. UROXATRAL [Interacting]
     Indication: PROSTATIC DISORDER
     Route: 048
     Dates: start: 20091101

REACTIONS (18)
  - PNEUMONIA BACTERIAL [None]
  - MALAISE [None]
  - NAUSEA [None]
  - SOMNOLENCE [None]
  - RHINORRHOEA [None]
  - DRY MOUTH [None]
  - DYSPNOEA [None]
  - DIZZINESS [None]
  - ASTHENIA [None]
  - FEELING ABNORMAL [None]
  - GAIT DISTURBANCE [None]
  - MUSCULAR WEAKNESS [None]
  - ABDOMINAL DISCOMFORT [None]
  - ABASIA [None]
  - READING DISORDER [None]
  - FATIGUE [None]
  - INSOMNIA [None]
  - DRUG INTERACTION [None]
